FAERS Safety Report 9729841 (Version 1)
Quarter: 2013Q4

REPORT INFORMATION
  Report Type: Spontaneous
  Country: MA (occurrence: MA)
  Receive Date: 20131204
  Receipt Date: 20131204
  Transmission Date: 20140711
  Serious: Yes (Hospitalization)
  Sender: FDA-Public Use
  Company Number: MA-PFIZER INC-2013344192

PATIENT
  Age: 27 Year
  Sex: Female

DRUGS (1)
  1. AMLODIPINE BESILATE [Suspect]
     Dosage: 150 MG, SINGLE
     Route: 048

REACTIONS (4)
  - Overdose [Unknown]
  - Suicide attempt [Unknown]
  - Toxicity to various agents [Unknown]
  - Hypotension [Recovering/Resolving]
